FAERS Safety Report 7563465-2 (Version None)
Quarter: 2011Q2

REPORT INFORMATION
  Report Type: 
  Country: None (occurrence: None)
  Receive Date: 20110622
  Receipt Date: 20110609
  Transmission Date: 20111010
  Serious: Yes (Other)
  Sender: FDA-Public Use
  Company Number: GB-ELI_LILLY_AND_COMPANY-GB201106002446

PATIENT
  Age: 58 Year
  Sex: Female
  Weight: 61 kg

DRUGS (7)
  1. AMLODIPINE [Concomitant]
     Dosage: 10 MG, UNKNOWN
     Route: 048
     Dates: start: 20110524
  2. GLICLAZIDE [Concomitant]
     Indication: DIABETES MELLITUS
     Dosage: 160 MG, BID
     Route: 048
     Dates: start: 20020121
  3. CYMBALTA [Suspect]
     Indication: DIABETIC NEUROPATHY
     Dosage: 60 MG, UNKNOWN
     Route: 048
     Dates: start: 20110524, end: 20110524
  4. AMLODIPINE [Concomitant]
     Indication: HYPERTENSION
     Dosage: 5 MG, UNKNOWN
     Dates: start: 20061206
  5. METFORMIN HCL [Concomitant]
     Indication: DIABETES MELLITUS
     Dosage: 100 MG, TID
     Route: 048
     Dates: start: 20040117
  6. ATORVASTATIN [Concomitant]
     Indication: BLOOD CHOLESTEROL INCREASED
     Dosage: 20 MG, UNKNOWN
     Route: 048
     Dates: start: 20011022
  7. LISINOPRIL [Concomitant]
     Indication: HYPERTENSION
     Dosage: 10 MG, UNKNOWN
     Dates: start: 20091119

REACTIONS (3)
  - INTENTIONAL DRUG MISUSE [None]
  - SWELLING FACE [None]
  - ANGIOEDEMA [None]
